FAERS Safety Report 10675110 (Version 3)
Quarter: 2015Q2

REPORT INFORMATION
  Report Type: Spontaneous
  Country: US (occurrence: US)
  Receive Date: 20141224
  Receipt Date: 20150610
  Transmission Date: 20150821
  Serious: No
  Sender: FDA-Public Use
  Company Number: US-GLAXOSMITHKLINE-US2014GSK041159

PATIENT
  Sex: Female
  Weight: 63.49 kg

DRUGS (7)
  1. MEKINIST [Suspect]
     Active Substance: TRAMETINIB DIMETHYL SULFOXIDE
     Indication: MALIGNANT MELANOMA
     Dosage: 2 MG, QD
     Route: 048
     Dates: start: 2014
  2. TAFINLAR [Suspect]
     Active Substance: DABRAFENIB MESYLATE
     Indication: MALIGNANT MELANOMA
     Dosage: 150 MG, BID
     Route: 048
     Dates: start: 2014
  3. FEMARA [Concomitant]
     Active Substance: LETROZOLE
  4. LIPITOR [Concomitant]
     Active Substance: ATORVASTATIN CALCIUM
  5. OXYCODONE HYDROCHLORIDE. [Concomitant]
     Active Substance: OXYCODONE HYDROCHLORIDE
  6. TAFINLAR [Suspect]
     Active Substance: DABRAFENIB MESYLATE
     Indication: METASTATIC MALIGNANT MELANOMA
     Dosage: 150 MG, BID
     Route: 048
     Dates: start: 201408
  7. BUTRANS [Concomitant]
     Active Substance: BUPRENORPHINE

REACTIONS (9)
  - Adverse drug reaction [Unknown]
  - Alopecia [Unknown]
  - Pyrexia [Unknown]
  - Burning sensation [Unknown]
  - Skin burning sensation [Unknown]
  - Hyperkeratosis [Unknown]
  - Melanocytic naevus [Unknown]
  - Skin exfoliation [Unknown]
  - Pain in extremity [Unknown]
